FAERS Safety Report 5758228-4 (Version None)
Quarter: 2008Q2

REPORT INFORMATION
  Report Type: 
  Country: None (occurrence: None)
  Receive Date: 20080604
  Receipt Date: 20080602
  Transmission Date: 20081010
  Serious: Yes (Disabling, Other)
  Sender: FDA-Public Use
  Company Number: DE-BRISTOL-MYERS SQUIBB COMPANY-14181127

PATIENT
  Age: 38 Year
  Sex: Female
  Weight: 49 kg

DRUGS (3)
  1. ABILIFY [Suspect]
     Indication: HUNTINGTON'S CHOREA
     Dosage: STARTED WITH 5 MG/DAY + FINALLY 20 MG.2 TABS PER DAY(TOTAL DOSE 20MG).
     Route: 048
     Dates: start: 20080301
  2. MITOTANE [Concomitant]
     Dosage: 1 DOSAGE FORM = 1.5 TAB.
  3. ZOLOFT [Concomitant]
     Dosage: 1 DOSAGE FORM = 1.5 TAB.

REACTIONS (5)
  - FEAR [None]
  - GENERAL PHYSICAL HEALTH DETERIORATION [None]
  - HALLUCINATION [None]
  - HYPERHIDROSIS [None]
  - PALPITATIONS [None]
